FAERS Safety Report 7357261-9 (Version None)
Quarter: 2011Q1

REPORT INFORMATION
  Report Type: 
  Country: None (occurrence: None)
  Receive Date: 20110308
  Receipt Date: 20110221
  Transmission Date: 20110831
  Serious: Yes (Hospitalization)
  Sender: FDA-Public Use
  Company Number: 8054538

PATIENT
  Sex: Female
  Weight: 46 kg

DRUGS (11)
  1. PREDNISONE [Concomitant]
  2. CALCIUM WITH VITAMIN D /01233101/ [Concomitant]
  3. CERTOLIZUMAB PEGOL [Suspect]
     Indication: CROHN'S DISEASE
     Dosage: (400 MG 1X/MONTH SUBCUTANEOUS)
     Route: 058
     Dates: start: 20090831, end: 20090914
  4. ALBUMIN (HUMAN) [Concomitant]
  5. CALCIUM CITRATE W/VITAMIN D NOS [Concomitant]
  6. CALCIUM WITH VITAMIN D /01233101/ [Concomitant]
  7. MULTI-VITAMINS [Concomitant]
  8. ASPIRIN [Concomitant]
  9. ACETAMINOPHEN [Concomitant]
  10. COUMADIN [Concomitant]
  11. VASOTEC [Concomitant]

REACTIONS (5)
  - ABDOMINAL ABSCESS [None]
  - DEEP VEIN THROMBOSIS [None]
  - PELVIC ABSCESS [None]
  - ATELECTASIS [None]
  - PULMONARY EMBOLISM [None]
